FAERS Safety Report 6913062-4 (Version None)
Quarter: 2010Q3

REPORT INFORMATION
  Report Type: 
  Country: None (occurrence: None)
  Receive Date: 20100806
  Receipt Date: 20090706
  Transmission Date: 20110219
  Serious: No
  Sender: FDA-Public Use
  Company Number: US-PFIZER INC-2009207839

PATIENT
  Sex: Male
  Weight: 70.295 kg

DRUGS (11)
  1. NORPACE [Suspect]
     Indication: ATRIAL FIBRILLATION
     Dosage: 100 MG, 3X/DAY
     Dates: start: 20090401
  2. NORPACE [Suspect]
     Dosage: 150 MG, 2X/DAY
     Dates: end: 20090401
  3. BUSPAR [Concomitant]
     Indication: ANXIETY
     Dosage: 25 MG, 2X/DAY
  4. LANOXIN [Concomitant]
     Dosage: 0.25 MG, UNK
  5. ACETYLSALICYLIC ACID [Concomitant]
     Dosage: UNK
  6. FOLIC ACID [Concomitant]
     Dosage: UNK
  7. MAGNESIUM [Concomitant]
     Dosage: UNK
  8. SELENIUM [Concomitant]
     Dosage: UNK
  9. CENTRUM SILVER [Concomitant]
     Dosage: UNK
  10. ASCORBIC ACID [Concomitant]
     Dosage: UNK
  11. FISH OIL [Concomitant]
     Dosage: UNK

REACTIONS (4)
  - ARTHRITIS [None]
  - DEPRESSION [None]
  - HYPERTENSION [None]
  - MALAISE [None]
